FAERS Safety Report 8321875-X (Version None)
Quarter: 2012Q2

REPORT INFORMATION
  Report Type: 
  Country: None (occurrence: None)
  Receive Date: 20120430
  Receipt Date: 20120423
  Transmission Date: 20120825
  Serious: Yes (Other)
  Sender: FDA-Public Use
  Company Number: ES-GLAXOSMITHKLINE-B0798099A

PATIENT
  Age: 66 Year
  Sex: Male

DRUGS (6)
  1. PRISDAL [Concomitant]
     Indication: DEPRESSION
     Route: 065
     Dates: start: 20110419
  2. VOTRIENT [Suspect]
     Indication: RENAL CANCER
     Dosage: 400MG PER DAY
     Route: 065
     Dates: start: 20111125
  3. PANTOPRAZOLE [Concomitant]
     Dosage: 40MG PER DAY
     Route: 065
     Dates: start: 20120126
  4. COZAAR [Concomitant]
     Indication: HYPERTENSION
     Dosage: 100MG PER DAY
     Route: 065
  5. LEVOTHYROXINE SODIUM [Concomitant]
     Indication: HYPOTHYROIDISM
     Dosage: 175MCG PER DAY
     Route: 065
     Dates: start: 20110419
  6. GLIMEPIRIDE [Concomitant]
     Indication: DIABETES MELLITUS
     Route: 065
     Dates: start: 20100324

REACTIONS (1)
  - TONGUE ULCERATION [None]
